FAERS Safety Report 4547922-9 (Version None)
Quarter: 2004Q4

REPORT INFORMATION
  Report Type: 
  Country: None (occurrence: None)
  Receive Date: 20041227
  Receipt Date: 20041013
  Transmission Date: 20050328
  Serious: No
  Sender: FDA-Public Use
  Company Number: 04P-163-0277434-00

PATIENT
  Age: 65 Year
  Sex: Female
  Weight: 64.4108 kg

DRUGS (6)
  1. HUMIRA [Suspect]
     Indication: RHEUMATOID ARTHRITIS
     Dosage: 40 MG, 1 IN 2 WK, SUBCUTANEOUS
     Route: 058
     Dates: start: 20040830
  2. METHOTREXATE [Concomitant]
  3. BISELECT [Concomitant]
  4. IBUPROFEN [Concomitant]
  5. ESTROGENS [Concomitant]
  6. FOLIC ACID [Concomitant]

REACTIONS (2)
  - HEADACHE [None]
  - OEDEMA PERIPHERAL [None]
